FAERS Safety Report 8943594 (Version 1)
Quarter: 2012Q4

REPORT INFORMATION
  Report Type: 
  Country: CA (occurrence: CA)
  Receive Date: 20121204
  Receipt Date: 20121204
  Transmission Date: 20130627
  Serious: Yes (Hospitalization, Other)
  Sender: FDA-Public Use
  Company Number: CA-009507513-1211CAN012657

PATIENT
  Age: 57 Year
  Sex: Male
  Weight: 81.5 kg

DRUGS (4)
  1. TEMOZOLOMIDE [Suspect]
     Indication: GLIOBLASTOMA
     Dosage: 145 mg, qd
     Route: 048
     Dates: start: 20100607, end: 20100813
  2. BEVACIZUMAB [Suspect]
     Dosage: UNK UNK, biw
     Dates: start: 20100607, end: 20100813
  3. DEXAMETHASONE [Concomitant]
     Dosage: 4 mg, qd
     Dates: start: 20100720
  4. OMEPRAZOLE [Concomitant]
     Dosage: 40 mg, UNK
     Dates: start: 20100430

REACTIONS (3)
  - Pulmonary embolism [Not Recovered/Not Resolved]
  - Deep vein thrombosis [Unknown]
  - Dyspnoea [Unknown]
